FAERS Safety Report 10094496 (Version 1)
Quarter: 2014Q2

REPORT INFORMATION
  Report Type: Report from Study
  Country: US (occurrence: US)
  Receive Date: 20140422
  Receipt Date: 20140422
  Transmission Date: 20141212
  Serious: Yes (Hospitalization)
  Sender: FDA-Public Use
  Company Number: US-ROCHE-1384542

PATIENT
  Age: 13 Year
  Sex: Male
  Weight: 51.4 kg

DRUGS (9)
  1. NUTROPIN [Suspect]
     Indication: GROWTH RETARDATION
     Dosage: 10MG/ML
     Route: 058
     Dates: start: 20101216, end: 201301
  2. NUTROPIN [Suspect]
     Route: 058
     Dates: start: 201303
  3. TOPAMAX [Concomitant]
     Route: 048
  4. CEFTRIAXONE SODIUM [Concomitant]
     Route: 065
  5. KEPPRA [Concomitant]
  6. VANCOMYCIN [Concomitant]
  7. MOTRIN [Concomitant]
     Route: 048
  8. NASONEX [Concomitant]
     Route: 065
  9. ZYRTEC [Concomitant]
     Route: 048

REACTIONS (2)
  - Brain empyema [Recovered/Resolved]
  - Hepatic enzyme increased [Recovering/Resolving]
